FAERS Safety Report 25399426 (Version 2)
Quarter: 2025Q3

REPORT INFORMATION
  Report Type: Spontaneous
  Country: US (occurrence: US)
  Receive Date: 20250605
  Receipt Date: 20250810
  Transmission Date: 20251020
  Serious: No
  Sender: ALEXION PHARMACEUTICALS
  Company Number: US-AstraZeneca-CH-00881746A

PATIENT
  Sex: Female

DRUGS (1)
  1. TAGRISSO [Suspect]
     Active Substance: OSIMERTINIB
     Route: 065

REACTIONS (9)
  - Diarrhoea [Unknown]
  - Epistaxis [Unknown]
  - Chills [Unknown]
  - Insomnia [Unknown]
  - Platelet count decreased [Unknown]
  - Arthralgia [Unknown]
  - Balance disorder [Unknown]
  - Hypertension [Unknown]
  - Gait disturbance [Unknown]
